FAERS Safety Report 10102061 (Version 3)
Quarter: 2014Q2

REPORT INFORMATION
  Report Type: Report from Study
  Country: BR (occurrence: BR)
  Receive Date: 20140424
  Receipt Date: 20140428
  Transmission Date: 20141212
  Serious: Yes (Hospitalization, Other)
  Sender: FDA-Public Use
  Company Number: BR-BAYER-2013-153517

PATIENT
  Age: 45 Year
  Sex: Female
  Weight: 82.9 kg

DRUGS (23)
  1. RIOCIGUAT (GUANYLATE CYCLASE STIMULATOR) [Suspect]
     Indication: PULMONARY HYPERTENSION
     Dosage: UNK
     Dates: start: 20110826, end: 20110907
  2. RIOCIGUAT (GUANYLATE CYCLASE STIMULATOR) [Suspect]
     Indication: PULMONARY HYPERTENSION
     Dosage: UNK
     Dates: start: 20110908, end: 20110921
  3. RIOCIGUAT (GUANYLATE CYCLASE STIMULATOR) [Suspect]
     Indication: PULMONARY HYPERTENSION
     Dosage: UNK
     Dates: start: 20110922, end: 20111005
  4. RIOCIGUAT (GUANYLATE CYCLASE STIMULATOR) [Suspect]
     Indication: PULMONARY HYPERTENSION
     Dosage: UNK
     Dates: start: 20111006, end: 20111020
  5. RIOCIGUAT (GUANYLATE CYCLASE STIMULATOR) [Suspect]
     Indication: PULMONARY HYPERTENSION
     Dosage: 2.5
     Dates: start: 20111021, end: 20111115
  6. RIOCIGUAT (GUANYLATE CYCLASE STIMULATOR) [Suspect]
     Indication: PULMONARY HYPERTENSION
     Dosage: 2.5
     Dates: start: 20111116, end: 20120229
  7. RIOCIGUAT (GUANYLATE CYCLASE STIMULATOR) [Suspect]
     Indication: PULMONARY HYPERTENSION
     Dosage: 2.5
     Dates: start: 20130301, end: 20130509
  8. RIOCIGUAT (GUANYLATE CYCLASE STIMULATOR) [Suspect]
     Indication: PULMONARY HYPERTENSION
     Dosage: 2.5
     Dates: start: 20120510, end: 20120821
  9. RIOCIGUAT (GUANYLATE CYCLASE STIMULATOR) [Suspect]
     Indication: PULMONARY HYPERTENSION
     Dosage: 2.5
     Dates: start: 20120822, end: 20121106
  10. RIOCIGUAT (GUANYLATE CYCLASE STIMULATOR) [Suspect]
     Indication: PULMONARY HYPERTENSION
     Dosage: 2.5
     Dates: start: 20121107, end: 20130206
  11. RIOCIGUAT (GUANYLATE CYCLASE STIMULATOR) [Suspect]
     Indication: PULMONARY HYPERTENSION
     Dosage: 2.5
     Dates: start: 20130207, end: 20130508
  12. RIOCIGUAT (GUANYLATE CYCLASE STIMULATOR) [Suspect]
     Indication: PULMONARY HYPERTENSION
     Dosage: 2.5
     Dates: start: 20130509, end: 20130807
  13. RIOCIGUAT (GUANYLATE CYCLASE STIMULATOR) [Suspect]
     Indication: PULMONARY HYPERTENSION
     Dosage: 2.5
     Dates: start: 20130808, end: 20131030
  14. RIOCIGUAT (GUANYLATE CYCLASE STIMULATOR) [Suspect]
     Indication: PULMONARY HYPERTENSION
     Dosage: 2.5
     Dates: start: 20131031, end: 20140205
  15. RIOCIGUAT (GUANYLATE CYCLASE STIMULATOR) [Suspect]
     Indication: PULMONARY HYPERTENSION
     Dosage: 2.5
     Dates: start: 20140206
  16. OMEPRAZOLE [Concomitant]
     Indication: GASTROOESOPHAGEAL REFLUX DISEASE
     Dosage: DAILY DOSE 40 MG
     Dates: start: 20130914, end: 20131212
  17. OMEPRAZOLE [Concomitant]
     Indication: GASTROOESOPHAGEAL REFLUX DISEASE
     Dosage: DAILY DOSE 40 MG
  18. FUROSEMIDE [Concomitant]
     Dosage: 80 MG DAILY
     Route: 048
  19. HYDROCHLOROTHIAZIDE [Concomitant]
     Dosage: 25 MG DAILY
     Route: 048
  20. SPIRONOLACTONE [Concomitant]
     Dosage: 25 MG DAILY
     Route: 048
  21. FERROUS SULFATE [Concomitant]
     Dosage: 750 MG DAILY
     Route: 048
  22. SYMBICORT [Concomitant]
     Dosage: 24/800 DAILY DOSE
     Route: 042
  23. WARFARIN [Concomitant]
     Dosage: 5 MG DAILY
     Route: 048

REACTIONS (9)
  - Pulmonary hypertension [Recovering/Resolving]
  - Pulmonary hypertension [Not Recovered/Not Resolved]
  - Anaemia [Recovering/Resolving]
  - Gastritis erosive [Not Recovered/Not Resolved]
  - Anaemia [Recovered/Resolved]
  - Upper gastrointestinal haemorrhage [Recovering/Resolving]
  - Upper gastrointestinal haemorrhage [None]
  - Varices oesophageal [Not Recovered/Not Resolved]
  - Hypokalaemia [Recovering/Resolving]
